FAERS Safety Report 5704575-1 (Version None)
Quarter: 2008Q2

REPORT INFORMATION
  Report Type: 
  Country: None (occurrence: None)
  Receive Date: 20080411
  Receipt Date: 20080411
  Transmission Date: 20081010
  Serious: No
  Sender: FDA-Public Use
  Company Number: None

PATIENT
  Age: 88 Year
  Sex: Male
  Weight: 54.9 kg

DRUGS (1)
  1. PIPERACILLIN AND TAZOBACTAM [Suspect]
     Indication: PNEUMONIA
     Dosage: 3.375GM QID IV
     Route: 042
     Dates: start: 20080224, end: 20080229

REACTIONS (2)
  - SEPSIS [None]
  - THROMBOCYTOPENIA [None]
